FAERS Safety Report 4370333-6 (Version None)
Quarter: 2004Q2

REPORT INFORMATION
  Report Type: 
  Country: None (occurrence: None)
  Receive Date: 20040603
  Receipt Date: 20040303
  Transmission Date: 20050107
  Serious: No
  Sender: FDA-Public Use
  Company Number: US-BRISTOL-MYERS SQUIBB COMPANY-12535118

PATIENT
  Age: 50 Year
  Sex: Female

DRUGS (5)
  1. ABILIFY [Suspect]
     Indication: BIPOLAR DISORDER
     Dosage: INITIATED 7.5 MG/DAY ON 13-JAN-04, INC TO 15 MG/DAY ON 20-JAN-04, DEC TO 10 MG/DAY ON 02-FEB-04
     Route: 048
     Dates: start: 20040113, end: 20040310
  2. CLONAZEPAM [Concomitant]
     Dosage: 1/2 OF A 2 MG TABLET IN AM, ONE TABLET AT NIGHT
  3. WELLBUTRIN SR [Concomitant]
  4. LEXAPRO [Concomitant]
  5. ZYPREXA [Concomitant]

REACTIONS (3)
  - OESOPHAGITIS [None]
  - PANIC ATTACK [None]
  - PHARYNGITIS STREPTOCOCCAL [None]
